FAERS Safety Report 6493432-1 (Version None)
Quarter: 2009Q4

REPORT INFORMATION
  Report Type: 
  Country: None (occurrence: None)
  Receive Date: 20091211
  Receipt Date: 20091211
  Transmission Date: 20100525
  Serious: Yes (Other)
  Sender: FDA-Public Use
  Company Number: None

PATIENT
  Age: 64 Year
  Sex: Female

DRUGS (10)
  1. CITALOPRAM HYDROBROMIDE [Suspect]
     Dosage: 10 MG. ONCE PER DAY
     Dates: start: 20081111, end: 20090801
  2. LISINOPRIL [Concomitant]
  3. ATENOLOL [Concomitant]
  4. FEXOFENADINE [Concomitant]
  5. CORTASOL [Concomitant]
  6. ISACORT SUPPLEMENT [Concomitant]
  7. SUDAFED 12 HOUR [Concomitant]
  8. NASACORT SPRAY [Concomitant]
  9. HORMONE COMPOUND (PROGESTERONE, DHEA, PERMARIN) [Concomitant]
  10. VICODIN [Concomitant]

REACTIONS (9)
  - DYSPNOEA [None]
  - HYPERSENSITIVITY [None]
  - IRRITABILITY [None]
  - METAL POISONING [None]
  - ORAL PAIN [None]
  - PRURITUS [None]
  - RASH [None]
  - REACTION TO DRUG EXCIPIENTS [None]
  - SWOLLEN TONGUE [None]
